FAERS Safety Report 25370780 (Version 2)
Quarter: 2025Q2

REPORT INFORMATION
  Report Type: Report from Study
  Country: US (occurrence: US)
  Receive Date: 20250528
  Receipt Date: 20250630
  Transmission Date: 20250716
  Serious: Yes (Other)
  Sender: JAZZ
  Company Number: US-JAZZ PHARMACEUTICALS-2025-US-013512

PATIENT
  Age: 54 Year
  Sex: Male
  Weight: 83.9 kg

DRUGS (3)
  1. EPIDIOLEX [Suspect]
     Active Substance: CANNABIDIOL
     Indication: Lennox-Gastaut syndrome
     Dosage: 4 MILLILITER, BID (9.54 MILLIGRAM PER KILOGRAM PER DAY)
     Route: 048
     Dates: start: 20250201
  2. EPIDIOLEX [Suspect]
     Active Substance: CANNABIDIOL
     Dosage: 9.53 MILLIGRAM/KILOGRAM/DAY BID
     Route: 048
     Dates: start: 20250201
  3. VALPROIC ACID [Concomitant]
     Active Substance: VALPROIC ACID
     Indication: Product used for unknown indication

REACTIONS (5)
  - Petit mal epilepsy [Not Recovered/Not Resolved]
  - Fatigue [Not Recovered/Not Resolved]
  - Nervousness [Not Recovered/Not Resolved]
  - Platelet count decreased [Not Recovered/Not Resolved]
  - Therapeutic response unexpected [Unknown]

NARRATIVE: CASE EVENT DATE: 20250508
